FAERS Safety Report 5135739-6 (Version None)
Quarter: 2006Q4

REPORT INFORMATION
  Report Type: 
  Country: None (occurrence: None)
  Receive Date: 20061026
  Receipt Date: 20061018
  Transmission Date: 20070319
  Serious: Yes (Hospitalization)
  Sender: FDA-Public Use
  Company Number: FR-SANOFI-SYNTHELABO-A01200608787

PATIENT
  Age: 60 Year
  Sex: Female

DRUGS (3)
  1. ORAL ANTICOAGULANT [Suspect]
     Indication: HEART RATE ABNORMAL
     Dosage: UNK
     Route: 048
  2. PLAVIX [Suspect]
     Indication: CEREBROVASCULAR ACCIDENT
     Route: 048
  3. ASPIRIN [Suspect]
     Indication: CEREBROVASCULAR ACCIDENT
     Dosage: UNK
     Route: 048

REACTIONS (3)
  - LOSS OF CONSCIOUSNESS [None]
  - MALAISE [None]
  - MYDRIASIS [None]
